FAERS Safety Report 7965099-4 (Version None)
Quarter: 2011Q4

REPORT INFORMATION
  Report Type: 
  Country: None (occurrence: None)
  Receive Date: 20111208
  Receipt Date: 20111122
  Transmission Date: 20120403
  Serious: Yes (Hospitalization, Other)
  Sender: FDA-Public Use
  Company Number: US-BAYER-2011-024899

PATIENT
  Age: 30 Year
  Sex: Female
  Weight: 73 kg

DRUGS (8)
  1. PROTONIX [Concomitant]
  2. PREDNISONE TAB [Concomitant]
     Dosage: 40 MG, QD
  3. ASACOL [Concomitant]
  4. SOLU-MEDROL [Concomitant]
  5. LEVAQUIN [Concomitant]
  6. FLAGYL [Concomitant]
  7. YAZ [Suspect]
     Indication: CONTRACEPTION
     Dosage: UNK
     Dates: start: 20060101, end: 20090101
  8. YAZ [Suspect]
     Indication: MIGRAINE

REACTIONS (4)
  - CHOLELITHIASIS [None]
  - CHOLECYSTITIS CHRONIC [None]
  - PANCREATITIS [None]
  - COLITIS ULCERATIVE [None]
